FAERS Safety Report 5277585-9 (Version None)
Quarter: 2007Q1

REPORT INFORMATION
  Report Type: 
  Country: None (occurrence: None)
  Receive Date: 20070327
  Receipt Date: 20070315
  Transmission Date: 20070707
  Serious: Yes (Hospitalization)
  Sender: FDA-Public Use
  Company Number: AU-SANOFI-SYNTHELABO-A01200702952

PATIENT
  Sex: Female

DRUGS (1)
  1. STILNOX [Suspect]
     Indication: DRUG DEPENDENCE
     Dosage: UNK
     Route: 065
     Dates: start: 20030101

REACTIONS (3)
  - AMNESIA [None]
  - DRUG DEPENDENCE [None]
  - ROAD TRAFFIC ACCIDENT [None]
